FAERS Safety Report 8832556 (Version 1)
Quarter: 2012Q4

REPORT INFORMATION
  Report Type: Spontaneous
  Country: US (occurrence: None)
  Receive Date: 20121009
  Receipt Date: 20121009
  Transmission Date: 20130627
  Serious: Yes (Life-Threatening)
  Sender: FDA-Public Use
  Company Number: None

PATIENT
  Age: 53 Year
  Sex: Female

DRUGS (3)
  1. SPRYCEL [Suspect]
     Indication: CML
     Dates: start: 20120718, end: 20120918
  2. HYDREA [Concomitant]
  3. LEVOTHYROXINE [Concomitant]

REACTIONS (1)
  - Bone marrow failure [None]
